FAERS Safety Report 7470637-4 (Version None)
Quarter: 2011Q2

REPORT INFORMATION
  Report Type: 
  Country: None (occurrence: None)
  Receive Date: 20110506
  Receipt Date: 20110506
  Transmission Date: 20111010
  Serious: Yes (Other)
  Sender: FDA-Public Use
  Company Number: None

PATIENT
  Age: 64 Year
  Sex: Female
  Weight: 53.0709 kg

DRUGS (3)
  1. LYRICA [Suspect]
     Indication: FIBROMYALGIA
     Dosage: 300 MG BID PO
     Route: 048
     Dates: start: 20110217, end: 20110505
  2. LYRICA [Suspect]
     Indication: OSTEOARTHRITIS
     Dosage: 300 MG BID PO
     Route: 048
     Dates: start: 20110217, end: 20110505
  3. LYRICA [Suspect]
     Indication: MIGRAINE
     Dosage: 300 MG BID PO
     Route: 048
     Dates: start: 20110217, end: 20110505

REACTIONS (2)
  - WEIGHT INCREASED [None]
  - OEDEMA PERIPHERAL [None]
